FAERS Safety Report 11532933 (Version 1)
Quarter: 2015Q3

REPORT INFORMATION
  Report Type: Not Available
  Country: None (occurrence: GB)
  Receive Date: 20150921
  Receipt Date: 20150921
  Transmission Date: 20151125
  Serious: Yes (Death)
  Sender: FDA-Public Use
  Company Number: GB-LINDE GAS NORTH AMERICA LLC-GB-LHC-2015121

PATIENT
  Age: 13 Year
  Sex: Female
  Weight: 56 kg

DRUGS (7)
  1. METHOTREXATE [Suspect]
     Active Substance: METHOTREXATE
     Indication: ACUTE LYMPHOCYTIC LEUKAEMIA
     Route: 042
     Dates: start: 20081209, end: 20081209
  2. CHEMOTHERAPY [Concomitant]
     Active Substance: UNSPECIFIED INGREDIENT
     Indication: ACUTE LYMPHOCYTIC LEUKAEMIA
  3. METHOTREXATE [Suspect]
     Active Substance: METHOTREXATE
     Indication: ACUTE LYMPHOCYTIC LEUKAEMIA
     Route: 037
     Dates: start: 20080801, end: 20080801
  4. NITROUS OXIDE (GENERIC) [Suspect]
     Active Substance: NITROUS OXIDE
     Indication: INDUCTION OF ANAESTHESIA
     Dates: start: 20080801, end: 20080801
  5. ANAESTHETIC [Concomitant]
     Active Substance: UNSPECIFIED INGREDIENT
  6. OXYGEN (GENERIC) [Concomitant]
     Active Substance: OXYGEN
  7. PROPFOL [Concomitant]
     Active Substance: PROPOFOL

REACTIONS (8)
  - Neurological decompensation [Not Recovered/Not Resolved]
  - Eyelid ptosis [Recovered/Resolved]
  - Drug interaction [Unknown]
  - Dysarthria [Not Recovered/Not Resolved]
  - Lethargy [Not Recovered/Not Resolved]
  - Leukoencephalopathy [Fatal]
  - Affect lability [Not Recovered/Not Resolved]
  - Coordination abnormal [Not Recovered/Not Resolved]

NARRATIVE: CASE EVENT DATE: 200812
